FAERS Safety Report 7351129-X (Version None)
Quarter: 2011Q1

REPORT INFORMATION
  Report Type: 
  Country: None (occurrence: None)
  Receive Date: 20110314
  Receipt Date: 20090306
  Transmission Date: 20110831
  Serious: Yes (Other)
  Sender: FDA-Public Use
  Company Number: GB-PFIZER INC-2009180806

PATIENT
  Age: 37 Year
  Sex: Female

DRUGS (1)
  1. CHAMPIX [Suspect]
     Indication: SMOKING CESSATION THERAPY
     Route: 048
     Dates: start: 20090128, end: 20090202

REACTIONS (6)
  - SOMNOLENCE [None]
  - BALANCE DISORDER [None]
  - CONFUSIONAL STATE [None]
  - COORDINATION ABNORMAL [None]
  - URINARY INCONTINENCE [None]
  - DYSARTHRIA [None]
